FAERS Safety Report 5050902-0 (Version None)
Quarter: 2006Q3

REPORT INFORMATION
  Report Type: 
  Country: None (occurrence: None)
  Receive Date: 20060710
  Receipt Date: 20060628
  Transmission Date: 20061208
  Serious: Yes (Death, Other)
  Sender: FDA-Public Use
  Company Number: 2006-DE-03300GD

PATIENT
  Sex: Female

DRUGS (1)
  1. PREDNISONE TAB [Suspect]
     Indication: ECZEMA

REACTIONS (7)
  - AORTIC ANEURYSM [None]
  - AORTIC ARTERIOSCLEROSIS [None]
  - AORTIC NECROSIS [None]
  - AORTITIS [None]
  - CONDITION AGGRAVATED [None]
  - LUNG INFECTION [None]
  - MOLLUSCUM CONTAGIOSUM [None]
